FAERS Safety Report 6354635-X (Version None)
Quarter: 2009Q3

REPORT INFORMATION
  Report Type: 
  Country: None (occurrence: None)
  Receive Date: 20090914
  Receipt Date: 20090903
  Transmission Date: 20100115
  Serious: Yes (Death, Hospitalization)
  Sender: FDA-Public Use
  Company Number: FR-ELI_LILLY_AND_COMPANY-FR200909001081

PATIENT
  Age: 41 Year
  Sex: Male

DRUGS (1)
  1. ZYPREXA [Suspect]
     Indication: PSYCHOTIC DISORDER
     Dosage: 40 MG, DAILY (1/D)
     Route: 048

REACTIONS (3)
  - DEATH [None]
  - OVERDOSE [None]
  - PSYCHOTIC DISORDER [None]
